FAERS Safety Report 12315844 (Version 1)
Quarter: 2016Q2

REPORT INFORMATION
  Report Type: Spontaneous
  Country: US (occurrence: US)
  Receive Date: 20160428
  Receipt Date: 20160428
  Transmission Date: 20160815
  Serious: No
  Sender: FDA-Public Use
  Company Number: US-AKRIMAX-TIR-2016-0260

PATIENT
  Age: 53 Year
  Sex: Female
  Weight: 103.97 kg

DRUGS (5)
  1. XANAX [Concomitant]
     Active Substance: ALPRAZOLAM
     Indication: PRODUCT USED FOR UNKNOWN INDICATION
     Dosage: AS NEEDED
     Route: 048
     Dates: start: 201511
  2. HYDROCHLOROTHIAZIDE. [Concomitant]
     Active Substance: HYDROCHLOROTHIAZIDE
     Indication: HYPERTENSION
     Dosage: 25MG DAILY
     Route: 048
  3. TIROSINT [Suspect]
     Active Substance: LEVOTHYROXINE SODIUM
     Dosage: ONE CAPSULE DAILY AND TWO CAPSULES DAILY ON ALTERNATING DAYS THROUGH THE WEEK
     Route: 048
     Dates: start: 20160301, end: 20160325
  4. IRBESARTAN. [Concomitant]
     Active Substance: IRBESARTAN
     Indication: HYPERTENSION
     Dosage: 150MG DAILY
     Route: 048
  5. TIROSINT [Suspect]
     Active Substance: LEVOTHYROXINE SODIUM
     Indication: THYROIDECTOMY
     Dosage: 150MCG DAILY
     Route: 048
     Dates: start: 20160220, end: 20160301

REACTIONS (8)
  - Decreased appetite [Unknown]
  - Drug level above therapeutic [Unknown]
  - Tri-iodothyronine increased [Recovered/Resolved]
  - Thirst decreased [Recovered/Resolved]
  - Anxiety [Unknown]
  - Hyperthyroidism [Recovered/Resolved]
  - Feeling abnormal [Unknown]
  - Irritability [Unknown]

NARRATIVE: CASE EVENT DATE: 20160220
